FAERS Safety Report 5541748-5 (Version None)
Quarter: 2007Q4

REPORT INFORMATION
  Report Type: 
  Country: None (occurrence: None)
  Receive Date: 20071210
  Receipt Date: 20071129
  Transmission Date: 20080405
  Serious: Yes (Hospitalization, Congenital Anomaly)
  Sender: FDA-Public Use
  Company Number: A0661951A

PATIENT
  Sex: Female
  Weight: 3.6 kg

DRUGS (3)
  1. PAXIL [Suspect]
     Indication: DEPRESSION
     Dosage: 20MG UNKNOWN
     Dates: start: 19981027, end: 20060101
  2. PRENATAL VITAMINS [Concomitant]
  3. TYLENOL [Concomitant]

REACTIONS (20)
  - CARDIAC FAILURE CONGESTIVE [None]
  - CEREBRAL VENTRICLE DILATATION [None]
  - CONGENITAL ANOMALY [None]
  - CONVULSION [None]
  - CYANOSIS [None]
  - DRUG DEPENDENCE [None]
  - DRUG EXPOSURE DURING PREGNANCY [None]
  - HYDROCEPHALUS [None]
  - HYPOVOLAEMIA [None]
  - HYPOXIA [None]
  - METABOLIC ACIDOSIS [None]
  - MYOPATHY [None]
  - PERSISTENT FOETAL CIRCULATION [None]
  - POOR QUALITY SLEEP [None]
  - PULMONARY HAEMORRHAGE [None]
  - RESPIRATORY DISTRESS [None]
  - RESPIRATORY FAILURE [None]
  - RIGHT VENTRICULAR FAILURE [None]
  - SEPSIS [None]
  - THROMBOSIS [None]
